FAERS Safety Report 4571930-5 (Version None)
Quarter: 2005Q1

REPORT INFORMATION
  Report Type: 
  Country: None (occurrence: None)
  Receive Date: 20050207
  Receipt Date: 20050126
  Transmission Date: 20050727
  Serious: Yes (Death, Hospitalization)
  Sender: FDA-Public Use
  Company Number: PHBS2005JP01444

PATIENT
  Age: 40 Year
  Sex: Male

DRUGS (7)
  1. SIMULECT [Suspect]
     Indication: LIVER TRANSPLANT
     Route: 042
     Dates: start: 20030101, end: 20030101
  2. SIMULECT [Suspect]
     Route: 042
     Dates: start: 20030301, end: 20030301
  3. SIMULECT [Suspect]
     Route: 042
     Dates: start: 20030101, end: 20030101
  4. SIMULECT [Suspect]
     Route: 042
     Dates: start: 20030401, end: 20030401
  5. STEROIDS NOS [Suspect]
     Indication: LIVER TRANSPLANT
     Dates: start: 20030107, end: 20030114
  6. CELLCEPT [Suspect]
     Indication: LIVER TRANSPLANT
     Dates: start: 20030107, end: 20030114
  7. FK 506 [Suspect]
     Indication: LIVER TRANSPLANT
     Dates: start: 20030114

REACTIONS (12)
  - ASCITES [None]
  - BLOOD BILIRUBIN INCREASED [None]
  - DISEASE RECURRENCE [None]
  - GRAFT DYSFUNCTION [None]
  - HEPATIC CIRRHOSIS [None]
  - HEPATIC FAILURE [None]
  - HEPATIC FIBROSIS [None]
  - HEPATIC NECROSIS [None]
  - HEPATITIS C [None]
  - HEPATITIS CHOLESTATIC [None]
  - TRANSAMINASES INCREASED [None]
  - WHITE BLOOD CELL COUNT DECREASED [None]
